FAERS Safety Report 6211862-X (Version None)
Quarter: 2009Q2

REPORT INFORMATION
  Report Type: 
  Country: None (occurrence: None)
  Receive Date: 20090528
  Receipt Date: 20090514
  Transmission Date: 20091009
  Serious: Yes (Other)
  Sender: FDA-Public Use
  Company Number: WAES 0904USA00070

PATIENT
  Age: 79 Year
  Sex: Female

DRUGS (10)
  1. FOSAMAX [Suspect]
     Indication: OSTEOPOROSIS
     Dosage: 5 MG/DAILY PO
     Route: 048
     Dates: start: 20040608, end: 20090306
  2. PREDNISOLONE [Suspect]
     Indication: POLYMYALGIA RHEUMATICA
     Dosage: 2 MG/DAILY PO
     Route: 048
     Dates: start: 20010531
  3. ACTONEL [Suspect]
     Indication: OSTEOPOROSIS
     Dosage: 2.5 MG/DAILY PO
     Route: 048
     Dates: start: 20030612, end: 20040608
  4. ACINON [Concomitant]
  5. ADALAT CC [Concomitant]
  6. BUFFERIN [Concomitant]
  7. GANATON [Concomitant]
  8. NITOROL-R [Concomitant]
  9. SOLANAX [Concomitant]
  10. SUNRYTHM [Concomitant]

REACTIONS (1)
  - OSTEOMYELITIS [None]
